FAERS Safety Report 6337009-7 (Version None)
Quarter: 2009Q3

REPORT INFORMATION
  Report Type: 
  Country: None (occurrence: None)
  Receive Date: 20090901
  Receipt Date: 20090821
  Transmission Date: 20100115
  Serious: Yes (Death)
  Sender: FDA-Public Use
  Company Number: TW-BAXTER-2009BH013228

PATIENT
  Sex: Male

DRUGS (4)
  1. DIANEAL [Suspect]
     Indication: PERITONEAL DIALYSIS
     Route: 033
     Dates: start: 20090701
  2. DIANEAL [Suspect]
     Route: 033
     Dates: start: 20090601, end: 20090701
  3. EXTRANEAL [Suspect]
     Indication: PERITONEAL DIALYSIS
     Route: 033
     Dates: start: 20090801
  4. EXTRANEAL [Suspect]
     Route: 033
     Dates: start: 20090601, end: 20090801

REACTIONS (1)
  - ROAD TRAFFIC ACCIDENT [None]
